FAERS Safety Report 7722047-X (Version None)
Quarter: 2011Q3

REPORT INFORMATION
  Report Type: 
  Country: None (occurrence: None)
  Receive Date: 20110831
  Receipt Date: 20110825
  Transmission Date: 20111222
  Serious: Yes (Hospitalization)
  Sender: FDA-Public Use
  Company Number: FR-AMGEN-FRASP2011021518

PATIENT
  Age: 75 Year
  Sex: Male

DRUGS (13)
  1. NEXIUM [Concomitant]
     Dosage: 40 MG, QD
  2. SOLUPRED                           /00016201/ [Concomitant]
     Dosage: 20 MG, UNK
  3. CLONAZEPAM [Concomitant]
     Dosage: 5 GTT, UNK
  4. CARBOPLATIN [Concomitant]
     Dosage: UNK
     Dates: start: 20100302, end: 20100511
  5. AVASTIN [Concomitant]
     Dosage: UNK
     Dates: start: 20100302, end: 20100806
  6. NEULASTA [Suspect]
     Indication: CHEMOTHERAPY
     Dosage: 6 MG, ONE TIME DOSE
     Route: 042
  7. BISOPROLOL FUMARATE [Concomitant]
     Dosage: 2.5 MG, QD
  8. ACIDE FOLIQUE [Concomitant]
  9. ALIMTA [Concomitant]
     Dosage: 400 MG/M2, ONE TIME DOSE
     Route: 042
     Dates: start: 20100909
  10. TRILEPTAL FILM-COATED TABLET [Concomitant]
     Dosage: 600 MG, QD
  11. RAMIPRIL [Concomitant]
     Dosage: 2.5 MG, QD
  12. TAXOL [Concomitant]
     Dosage: UNK
     Dates: start: 20100302, end: 20100511
  13. TARCEVA [Concomitant]
     Dosage: UNK

REACTIONS (4)
  - THROMBOCYTOPENIA [None]
  - SEGMENTED HYALINISING VASCULITIS [None]
  - TRANSAMINASES INCREASED [None]
  - NEUTROPENIA [None]
